FAERS Safety Report 19593112 (Version 1)
Quarter: 2021Q3

REPORT INFORMATION
  Report Type: Spontaneous
  Country: US (occurrence: US)
  Receive Date: 20210722
  Receipt Date: 20210722
  Transmission Date: 20211014
  Serious: Yes (Hospitalization, Other)
  Sender: FDA-Public Use
  Company Number: US-SA-2019SA012880

PATIENT
  Age: 52 Year
  Sex: Female

DRUGS (8)
  1. THIAMINE. [Concomitant]
     Active Substance: THIAMINE
     Indication: VITAMIN SUPPLEMENTATION
     Dosage: 100 MG/DAY
  2. TRAMADOL HYDROCHLORIDE. [Suspect]
     Active Substance: TRAMADOL HYDROCHLORIDE
     Indication: COCCYDYNIA
     Dosage: 50 MG EVERY 8 HOURS AS NEEDED (MAXIMUM 100 MG/D)
  3. IBUPROFEN. [Suspect]
     Active Substance: IBUPROFEN
     Indication: COCCYDYNIA
     Dosage: 800 MG
  4. FOLIC ACID. [Concomitant]
     Active Substance: FOLIC ACID
     Indication: VITAMIN SUPPLEMENTATION
     Dosage: 1 MG/DAY
  5. HYDROXYZINE [Concomitant]
     Active Substance: HYDROXYZINE HYDROCHLORIDE
     Indication: ANXIETY
     Dosage: 25 MG, PRN (AS NEEDED)
  6. MELOXICAM. [Suspect]
     Active Substance: MELOXICAM
     Indication: COCCYDYNIA
     Dosage: A COURSE OF MELOXICAM 15 AT MG DAILY
  7. LIDOCAINE. [Suspect]
     Active Substance: LIDOCAINE
     Indication: COCCYDYNIA
     Dosage: PATCH
  8. DESVENLAFAXINE. [Concomitant]
     Active Substance: DESVENLAFAXINE
     Indication: GENERALISED ANXIETY DISORDER
     Dosage: 50 MG/DAY

REACTIONS (2)
  - Drug ineffective [Unknown]
  - Hyponatraemia [Recovering/Resolving]
